FAERS Safety Report 23447095 (Version 1)
Quarter: 2024Q1

REPORT INFORMATION
  Report Type: Spontaneous
  Country: US (occurrence: None)
  Receive Date: 20240126
  Receipt Date: 20240126
  Transmission Date: 20240410
  Serious: Yes (Hospitalization, Other)
  Sender: FDA-Public Use
  Company Number: None

PATIENT
  Age: 44 Year
  Sex: Female

DRUGS (4)
  1. DALFAMPRIDINE [Suspect]
     Active Substance: DALFAMPRIDINE
     Dosage: FREQUENCY : TWICE A DAY;?
     Route: 048
     Dates: start: 20230725, end: 20231201
  2. AMPHETAMINE SULFATE\DEXTROAMPHETAMINE [Concomitant]
     Active Substance: AMPHETAMINE SULFATE\DEXTROAMPHETAMINE
  3. NATALIZUMAB [Concomitant]
     Active Substance: NATALIZUMAB
  4. BACLOFEN [Concomitant]
     Active Substance: BACLOFEN

REACTIONS (2)
  - Generalised tonic-clonic seizure [None]
  - Pneumonia aspiration [None]

NARRATIVE: CASE EVENT DATE: 20231201
